FAERS Safety Report 21463450 (Version 2)
Quarter: 2022Q4

REPORT INFORMATION
  Report Type: Spontaneous
  Country: UA (occurrence: UA)
  Receive Date: 20221017
  Receipt Date: 20221027
  Transmission Date: 20230113
  Serious: Yes (Other)
  Sender: FDA-Public Use
  Company Number: UA-NOVARTISPH-NVSC2022UA230310

PATIENT
  Age: 47 Year
  Sex: Male

DRUGS (2)
  1. HYRIMOZ [Suspect]
     Active Substance: ADALIMUMAB-ADAZ
     Indication: Ankylosing spondylitis
     Dosage: 0.8 ML, QW2 (ONCE PER 2 WEEKS)
     Route: 058
     Dates: start: 20220809, end: 20220920
  2. REVMOXICAMUM [Concomitant]
     Indication: Analgesic therapy
     Dosage: UNK
     Route: 065

REACTIONS (2)
  - Blood pressure decreased [Recovering/Resolving]
  - Headache [Recovered/Resolved]

NARRATIVE: CASE EVENT DATE: 20220920
